FAERS Safety Report 5724731-6 (Version None)
Quarter: 2008Q2

REPORT INFORMATION
  Report Type: 
  Country: None (occurrence: None)
  Receive Date: 20080501
  Receipt Date: 20080424
  Transmission Date: 20081010
  Serious: Yes (Other)
  Sender: FDA-Public Use
  Company Number: PHBS2008GR04347

PATIENT
  Age: 77 Year
  Sex: Male

DRUGS (1)
  1. ZOMETA [Suspect]
     Dosage: UNK, QMO
     Route: 042

REACTIONS (3)
  - BONE DISORDER [None]
  - LOOSE TOOTH [None]
  - OSTEONECROSIS [None]
